FAERS Safety Report 4864712-8 (Version None)
Quarter: 2005Q4

REPORT INFORMATION
  Report Type: 
  Country: None (occurrence: None)
  Receive Date: 20051222
  Receipt Date: 20041230
  Transmission Date: 20060501
  Serious: Yes (Hospitalization, Other)
  Sender: FDA-Public Use
  Company Number: US-MERCK-0501USA00018

PATIENT
  Age: 58 Year
  Sex: Male

DRUGS (2)
  1. VIOXX [Suspect]
     Route: 048
     Dates: start: 20000201, end: 20041001
  2. [THERAPY UNSPECIFIED] [Concomitant]
     Route: 048

REACTIONS (29)
  - ABDOMINAL PAIN [None]
  - ACCELERATED HYPERTENSION [None]
  - ALCOHOL WITHDRAWAL SYNDROME [None]
  - ALCOHOLISM [None]
  - AORTIC ARTERIOSCLEROSIS [None]
  - ASTHENIA [None]
  - BLOOD PRESSURE SYSTOLIC INCREASED [None]
  - CARDIAC MURMUR [None]
  - CELLULITIS [None]
  - CEREBRAL ISCHAEMIA [None]
  - CEREBROVASCULAR ACCIDENT [None]
  - COLON CANCER METASTATIC [None]
  - CONSTIPATION [None]
  - DIZZINESS [None]
  - DROOLING [None]
  - DYSARTHRIA [None]
  - ELECTROCARDIOGRAM ABNORMAL [None]
  - FACIAL PARESIS [None]
  - GASTRIC ULCER [None]
  - GASTRITIS [None]
  - GASTROOESOPHAGEAL REFLUX DISEASE [None]
  - HAEMORRHAGE [None]
  - INFARCTION [None]
  - INTESTINAL OBSTRUCTION [None]
  - NEOPLASM [None]
  - PETECHIAE [None]
  - SOMNOLENCE [None]
  - TRICUSPID VALVE INCOMPETENCE [None]
  - VENTRICULAR HYPERTROPHY [None]
